FAERS Safety Report 14671344 (Version 1)
Quarter: 2018Q1

REPORT INFORMATION
  Report Type: Spontaneous
  Country: FR (occurrence: FR)
  Receive Date: 20180323
  Receipt Date: 20180323
  Transmission Date: 20180509
  Serious: Yes (Other)
  Sender: FDA-Public Use
  Company Number: FR-MERCK KGAA-2044349

PATIENT
  Sex: Female

DRUGS (1)
  1. NOVOTHYROX [Suspect]
     Active Substance: LEVOTHYROXINE SODIUM
     Indication: PRODUCT USED FOR UNKNOWN INDICATION
     Dates: end: 2017

REACTIONS (21)
  - Loss of personal independence in daily activities [Recovering/Resolving]
  - Dyspnoea exertional [Recovering/Resolving]
  - Diarrhoea [Recovering/Resolving]
  - Muscle spasms [Recovering/Resolving]
  - Abdominal pain [Recovering/Resolving]
  - Euphoric mood [Recovering/Resolving]
  - Emotional disorder [Recovering/Resolving]
  - Impaired work ability [Recovering/Resolving]
  - Apathy [Recovering/Resolving]
  - Disturbance in attention [Recovering/Resolving]
  - Intellectual disability [Recovering/Resolving]
  - Fatigue [Recovering/Resolving]
  - Gastrointestinal disorder [Recovering/Resolving]
  - Social avoidant behaviour [Recovering/Resolving]
  - Alopecia [Recovering/Resolving]
  - Tachycardia [Recovering/Resolving]
  - General physical health deterioration [Recovering/Resolving]
  - Epistaxis [Recovering/Resolving]
  - Malaise [Recovering/Resolving]
  - Insomnia [Recovering/Resolving]
  - Asthenia [Recovering/Resolving]
